FAERS Safety Report 13383789 (Version 2)
Quarter: 2017Q1

REPORT INFORMATION
  Report Type: Spontaneous
  Country: US (occurrence: US)
  Receive Date: 20170329
  Receipt Date: 20170330
  Transmission Date: 20170429
  Serious: Yes (Hospitalization, Other)
  Sender: FDA-Public Use
  Company Number: US-ASTRAZENECA-2017SE30404

PATIENT
  Age: 56 Year
  Sex: Female

DRUGS (19)
  1. IBRANCE [Suspect]
     Active Substance: PALBOCICLIB
     Indication: BREAST CANCER FEMALE
     Route: 048
     Dates: start: 20170207
  2. VITAMIN D3 [Concomitant]
     Active Substance: CHOLECALCIFEROL
     Dosage: 1000 UNIT,  DAILY
     Route: 048
  3. TIMOPTIC [Concomitant]
     Active Substance: TIMOLOL MALEATE
     Dosage: AS DIRECTED
  4. IBRANCE [Suspect]
     Active Substance: PALBOCICLIB
     Indication: METASTATIC NEOPLASM
     Route: 048
     Dates: start: 20170207
  5. POTASSIUM GLUCONATE [Concomitant]
     Active Substance: POTASSIUM GLUCONATE
     Route: 048
  6. PROAIR HFA [Concomitant]
     Active Substance: ALBUTEROL SULFATE
     Dosage: 90 MCG/ACTUATION INHALER
  7. EXEMESTANE. [Concomitant]
     Active Substance: EXEMESTANE
     Dates: start: 20160517, end: 201701
  8. FASLODEX [Suspect]
     Active Substance: FULVESTRANT
     Indication: METASTATIC NEOPLASM
     Route: 030
     Dates: start: 20170207
  9. FASLODEX [Suspect]
     Active Substance: FULVESTRANT
     Indication: BREAST CANCER FEMALE
     Route: 030
     Dates: start: 20170207
  10. ZOFRAN [Concomitant]
     Active Substance: ONDANSETRON HYDROCHLORIDE
     Indication: VOMITING
     Dosage: 4 MG TABLET EVERY 8 HRS WHEN NEEDED.
     Route: 048
  11. MAGNESIUM [Concomitant]
     Active Substance: MAGNESIUM
     Route: 048
  12. ZOFRAN [Concomitant]
     Active Substance: ONDANSETRON HYDROCHLORIDE
     Indication: NAUSEA
     Dosage: 4 MG TABLET EVERY 8 HRS WHEN NEEDED.
     Route: 048
  13. TENORMIN [Suspect]
     Active Substance: ATENOLOL
     Route: 048
  14. COUMADIN [Concomitant]
     Active Substance: WARFARIN SODIUM
  15. ARIMIDEX [Suspect]
     Active Substance: ANASTROZOLE
     Route: 048
     Dates: start: 2010
  16. PRINIVIL [Suspect]
     Active Substance: LISINOPRIL
     Route: 048
  17. CALCIUM D3 [Concomitant]
     Active Substance: CALCIUM\CHOLECALCIFEROL
     Route: 048
  18. TRAVATAN Z [Concomitant]
     Active Substance: TRAVOPROST
     Dosage: 1 DROP EACH EYE DAILY
  19. FOSAMAX [Concomitant]
     Active Substance: ALENDRONATE SODIUM
     Dosage: TAKE 1 TABLET (70 MG TOTAL) BY MOUTH EVERY SEVEN DAYS

REACTIONS (18)
  - Bone marrow failure [Recovered/Resolved]
  - Foot fracture [Unknown]
  - Atrial fibrillation [Unknown]
  - Psoriasis [Unknown]
  - Pyrexia [Recovered/Resolved]
  - Cardiac disorder [Unknown]
  - Back pain [Unknown]
  - Arthralgia [Unknown]
  - Headache [Unknown]
  - Metastases to lung [Unknown]
  - Osteopenia [Unknown]
  - Tachycardia [Unknown]
  - Hilar lymphadenopathy [Unknown]
  - Dyspnoea [Unknown]
  - Nasopharyngitis [Unknown]
  - Mitral valve prolapse [Unknown]
  - Heart rate irregular [Unknown]
  - Malignant neoplasm progression [Unknown]

NARRATIVE: CASE EVENT DATE: 2012
